FAERS Safety Report 24971656 (Version 2)
Quarter: 2025Q1

REPORT INFORMATION
  Report Type: Spontaneous
  Country: JP (occurrence: JP)
  Receive Date: 20250214
  Receipt Date: 20250303
  Transmission Date: 20250408
  Serious: Yes (Other)
  Sender: RADIUS PHARM
  Company Number: JP-RADIUS HEALTH INC.-2024JP010890

PATIENT
  Age: 72 Year
  Sex: Female

DRUGS (2)
  1. ABALOPARATIDE [Suspect]
     Active Substance: ABALOPARATIDE
     Indication: Osteoporosis
     Route: 058
     Dates: end: 20241003
  2. ABALOPARATIDE [Suspect]
     Active Substance: ABALOPARATIDE
     Route: 058
     Dates: start: 20241011, end: 20241011

REACTIONS (3)
  - Overdose [Unknown]
  - Blood pressure decreased [Recovered/Resolved]
  - Back pain [Not Recovered/Not Resolved]

NARRATIVE: CASE EVENT DATE: 20241001
